FAERS Safety Report 21678148 (Version 1)
Quarter: 2022Q4

REPORT INFORMATION
  Report Type: Other
  Country: GB (occurrence: GB)
  Receive Date: 20221203
  Receipt Date: 20221203
  Transmission Date: 20230113
  Serious: Yes (Other)
  Sender: FDA-Public Use
  Company Number: GB-CELLTRION INC.-2022GB020156

PATIENT

DRUGS (1)
  1. RITUXIMAB [Suspect]
     Active Substance: RITUXIMAB
     Indication: Myelitis transverse
     Dosage: 1G EVERY 6 MONTHS
     Dates: start: 20180306, end: 20221121

REACTIONS (2)
  - Colitis [Not Recovered/Not Resolved]
  - Off label use [Unknown]
